FAERS Safety Report 6426559-0 (Version None)
Quarter: 2009Q4

REPORT INFORMATION
  Report Type: 
  Country: None (occurrence: None)
  Receive Date: 20091030
  Receipt Date: 20091016
  Transmission Date: 20100525
  Serious: No
  Sender: FDA-Public Use
  Company Number: 002135

PATIENT
  Sex: Female

DRUGS (3)
  1. VIMPAT [Suspect]
  2. VALPROATE SODIUM [Concomitant]
  3. ANTIPSYCHOTICS [Concomitant]

REACTIONS (1)
  - SYNCOPE [None]
